FAERS Safety Report 15349449 (Version 1)
Quarter: 2018Q3

REPORT INFORMATION
  Report Type: Report from Study
  Country: US (occurrence: US)
  Receive Date: 20180904
  Receipt Date: 20180904
  Transmission Date: 20181010
  Serious: Yes (Hospitalization)
  Sender: FDA-Public Use
  Company Number: US-ACTELION-A-NJ2017-152051

PATIENT
  Age: 61 Year
  Sex: Female

DRUGS (4)
  1. KCL [Concomitant]
     Active Substance: POTASSIUM CHLORIDE
     Dosage: 60 MEQ, UNK
  2. OPSUMIT [Suspect]
     Active Substance: MACITENTAN
     Indication: PULMONARY HYPERTENSION
     Dosage: 10 MG, QD
     Route: 048
     Dates: start: 20161026
  3. PROTONIX [Concomitant]
     Active Substance: PANTOPRAZOLE SODIUM
  4. ESBRIET [Concomitant]
     Active Substance: PIRFENIDONE
     Dosage: 801 MG, TID
     Route: 048
     Dates: start: 20161111

REACTIONS (30)
  - Diarrhoea [Recovered/Resolved]
  - Syncope [Unknown]
  - Fall [Unknown]
  - Pulmonary hypertension [Unknown]
  - Cardiac arrest [Recovered/Resolved]
  - Malaise [Recovered/Resolved]
  - Blood potassium increased [Unknown]
  - Hypokalaemia [Unknown]
  - Arrhythmia [Recovered/Resolved]
  - Dyspnoea [Recovered/Resolved]
  - Hypoxia [Unknown]
  - Presyncope [Recovered/Resolved]
  - Nausea [Unknown]
  - Chest pain [Recovered/Resolved]
  - Respiratory distress [Unknown]
  - Large intestinal haemorrhage [Recovered/Resolved with Sequelae]
  - Nodal rhythm [Recovered/Resolved]
  - Hyperkalaemia [Recovered/Resolved]
  - Dizziness [Unknown]
  - Decreased appetite [Recovered/Resolved]
  - Lethargy [Not Recovered/Not Resolved]
  - Hypotension [Unknown]
  - Respiratory failure [Recovering/Resolving]
  - Fatigue [Recovered/Resolved]
  - Blood creatinine increased [Unknown]
  - Iron deficiency anaemia [Recovered/Resolved]
  - Asthenia [Recovered/Resolved]
  - Blood glucose decreased [Unknown]
  - Hospitalisation [Unknown]
  - Weight increased [Unknown]

NARRATIVE: CASE EVENT DATE: 2016
